FAERS Safety Report 23132661 (Version 1)
Quarter: 2023Q4

REPORT INFORMATION
  Report Type: Spontaneous
  Country: US (occurrence: US)
  Receive Date: 20231101
  Receipt Date: 20231101
  Transmission Date: 20240110
  Serious: No
  Sender: FDA-Public Use
  Company Number: US-VIIV HEALTHCARE LIMITED-US2023AMR149234

PATIENT
  Sex: Male

DRUGS (7)
  1. CABENUVA [Suspect]
     Active Substance: CABOTEGRAVIR\RILPIVIRINE
     Indication: HIV infection
     Dosage: UNK UNK, Q2M (600/900 EVERY 2 MONTHS)
     Route: 030
     Dates: start: 20230515, end: 20231026
  2. CABENUVA [Suspect]
     Active Substance: CABOTEGRAVIR\RILPIVIRINE
     Indication: Acquired immunodeficiency syndrome
  3. CABENUVA [Suspect]
     Active Substance: CABOTEGRAVIR\RILPIVIRINE
  4. HYDROCORTISONE [Concomitant]
     Active Substance: HYDROCORTISONE
     Indication: Product used for unknown indication
     Dosage: UNK
  5. LEVOTHYROXINE [Concomitant]
     Active Substance: LEVOTHYROXINE
     Indication: Product used for unknown indication
     Dosage: UNK
  6. TADALAFIL [Concomitant]
     Active Substance: TADALAFIL
     Indication: Product used for unknown indication
     Dosage: UNK
  7. TESTOSTERONE [Concomitant]
     Active Substance: TESTOSTERONE
     Indication: Product used for unknown indication
     Dosage: UNK

REACTIONS (9)
  - Myalgia [Recovering/Resolving]
  - Gait inability [Recovering/Resolving]
  - Fall [Recovering/Resolving]
  - Inflammation [Recovering/Resolving]
  - Injection site nodule [Recovering/Resolving]
  - Injection site swelling [Recovering/Resolving]
  - Condition aggravated [Recovering/Resolving]
  - Pyrexia [Recovering/Resolving]
  - Pustular psoriasis [Recovering/Resolving]

NARRATIVE: CASE EVENT DATE: 20230101
